FAERS Safety Report 21185067 (Version 2)
Quarter: 2022Q3

REPORT INFORMATION
  Report Type: Spontaneous
  Country: IT (occurrence: IT)
  Receive Date: 20220808
  Receipt Date: 20220817
  Transmission Date: 20221027
  Serious: Yes (Hospitalization, Other)
  Sender: FDA-Public Use
  Company Number: None

PATIENT
  Age: 17 Year
  Sex: Female

DRUGS (4)
  1. ARIPIPRAZOLE [Suspect]
     Active Substance: ARIPIPRAZOLE
     Indication: Personality disorder
     Dosage: UNK
     Route: 048
  2. NITRAZEPAM [Suspect]
     Active Substance: NITRAZEPAM
     Indication: Bipolar disorder
     Dosage: 50 MG
     Route: 048
  3. SERTRALINE HYDROCHLORIDE [Suspect]
     Active Substance: SERTRALINE HYDROCHLORIDE
     Indication: Personality disorder
     Dosage: 500 MG
     Route: 048
     Dates: start: 20220511, end: 20220711
  4. QUETIAPINE [Suspect]
     Active Substance: QUETIAPINE
     Indication: Personality disorder
     Dosage: 575 MG
     Route: 048

REACTIONS (4)
  - Confusional state [Recovering/Resolving]
  - Depressed mood [Recovering/Resolving]
  - Sedation [Recovering/Resolving]
  - Drug abuse [Recovering/Resolving]

NARRATIVE: CASE EVENT DATE: 20220511
